FAERS Safety Report 15633799 (Version 3)
Quarter: 2019Q4

REPORT INFORMATION
  Report Type: Spontaneous
  Country: US (occurrence: US)
  Receive Date: 20181119
  Receipt Date: 20191014
  Transmission Date: 20200122
  Serious: No
  Sender: FDA-Public Use
  Company Number: US-SA-2018SA315245

PATIENT
  Age: 46 Year
  Sex: Male

DRUGS (2)
  1. PRALUENT [Suspect]
     Active Substance: ALIROCUMAB
     Indication: TYPE IIA HYPERLIPIDAEMIA
     Dosage: UNK
     Route: 058
     Dates: start: 201807
  2. PRALUENT [Suspect]
     Active Substance: ALIROCUMAB
     Dosage: 150 MG, QOW
     Route: 058
     Dates: start: 201907

REACTIONS (6)
  - Fatigue [Unknown]
  - Abdominal distension [Unknown]
  - Mood swings [Unknown]
  - Irritability [Unknown]
  - Insomnia [Unknown]
  - Injection site rash [Unknown]

NARRATIVE: CASE EVENT DATE: 20181112
